FAERS Safety Report 20591661 (Version 1)
Quarter: 2022Q1

REPORT INFORMATION
  Report Type: Spontaneous
  Country: AU (occurrence: AU)
  Receive Date: 20220314
  Receipt Date: 20220314
  Transmission Date: 20220424
  Serious: Yes (Hospitalization)
  Sender: FDA-Public Use
  Company Number: AU-BAXTER-2022BAX005002

PATIENT
  Age: 46 Year
  Sex: Female

DRUGS (4)
  1. SODIUM CHLORIDE [Suspect]
     Active Substance: SODIUM CHLORIDE
     Indication: Medication dilution
     Dosage: DOCETAXEL ACCORD WITH SODIUM CHLORIDE
     Route: 065
     Dates: start: 20220221
  2. DEXTROSE [Suspect]
     Active Substance: DEXTROSE
     Indication: Medication dilution
     Dosage: CARBOPLATIN ACCORD WITH GLUCOSE 5%
     Route: 065
     Dates: start: 20220221
  3. CARBOPLATIN [Suspect]
     Active Substance: CARBOPLATIN
     Indication: Product used for unknown indication
     Dosage: CARBOPLATIN ACCORD WITH GLUCOSE 5%
     Route: 065
     Dates: start: 20220221
  4. DOCETAXEL [Suspect]
     Active Substance: DOCETAXEL
     Indication: Product used for unknown indication
     Dosage: DOCETAXEL ACCORD WITH SODIUM CHLORIDE
     Route: 065
     Dates: start: 20220221

REACTIONS (2)
  - Deep vein thrombosis [Unknown]
  - Infusion site thrombosis [Unknown]

NARRATIVE: CASE EVENT DATE: 20220221
